FAERS Safety Report 25255810 (Version 1)
Quarter: 2025Q2

REPORT INFORMATION
  Report Type: Report from Study
  Country: CA (occurrence: CA)
  Receive Date: 20250430
  Receipt Date: 20250430
  Transmission Date: 20250717
  Serious: Yes (Death, Other)
  Sender: TAKEDA
  Company Number: CA-TAKEDA-2025TUS041625

PATIENT
  Age: 62 Year
  Sex: Female

DRUGS (19)
  1. VEDOLIZUMAB [Suspect]
     Active Substance: VEDOLIZUMAB
     Indication: Crohn^s disease
  2. BUDESONIDE [Concomitant]
     Active Substance: BUDESONIDE
  3. APIXABAN [Concomitant]
     Active Substance: APIXABAN
  4. HYDROMORPHONE [Concomitant]
     Active Substance: HYDROMORPHONE
  5. SPIRIVA [Concomitant]
     Active Substance: TIOTROPIUM BROMIDE MONOHYDRATE
  6. AMITRIPTYLINE [Concomitant]
     Active Substance: AMITRIPTYLINE
  7. BIOTIN [Concomitant]
     Active Substance: BIOTIN
  8. BISOPROLOL [Concomitant]
     Active Substance: BISOPROLOL
  9. JARDIANCE [Concomitant]
     Active Substance: EMPAGLIFLOZIN
  10. METFORMIN [Concomitant]
     Active Substance: METFORMIN HYDROCHLORIDE
  11. ALBUTEROL [Concomitant]
     Active Substance: ALBUTEROL
  12. SIMVASTATIN [Concomitant]
     Active Substance: SIMVASTATIN
  13. SITAGLIPTIN [Concomitant]
     Active Substance: SITAGLIPTIN
  14. MANNITOL [Concomitant]
     Active Substance: MANNITOL
  15. CISPLATIN [Concomitant]
     Active Substance: CISPLATIN
  16. ENTOCORT [Concomitant]
     Active Substance: BUDESONIDE
  17. Cortiment [Concomitant]
  18. PREGABALIN [Concomitant]
     Active Substance: PREGABALIN
  19. PEMETREXED [Concomitant]
     Active Substance: PEMETREXED

REACTIONS (1)
  - Death [Fatal]

NARRATIVE: CASE EVENT DATE: 20250421
